FAERS Safety Report 20751248 (Version 3)
Quarter: 2022Q4

REPORT INFORMATION
  Report Type: Spontaneous
  Country: JP (occurrence: JP)
  Receive Date: 20220426
  Receipt Date: 20221118
  Transmission Date: 20230113
  Serious: Yes (Hospitalization, Other)
  Sender: FDA-Public Use
  Company Number: JP-PFIZER INC-202200580122

PATIENT
  Age: 71 Year
  Sex: Male
  Weight: 62 kg

DRUGS (5)
  1. OXALIPLATIN [Suspect]
     Active Substance: OXALIPLATIN
     Indication: Colon cancer metastatic
     Dosage: UNK (FIVE COURSES)
  2. OXALIPLATIN [Suspect]
     Active Substance: OXALIPLATIN
     Dosage: UNK (6 COURSES)
  3. XELODA [Concomitant]
     Active Substance: CAPECITABINE
     Indication: Colon cancer metastatic
     Dosage: UNK (FIVE COURSES)
  4. XELODA [Concomitant]
     Active Substance: CAPECITABINE
     Dosage: UNK (6 COURSES)
  5. BEVACIZUMAB [Concomitant]
     Active Substance: BEVACIZUMAB
     Indication: Colon cancer metastatic
     Dosage: UNK (FIVE COURSES)

REACTIONS (5)
  - Drug-induced liver injury [Unknown]
  - Portal hypertension [Unknown]
  - Varices oesophageal [Unknown]
  - Ascites [Unknown]
  - Splenomegaly [Unknown]
